FAERS Safety Report 9388897 (Version 2)
Quarter: 2013Q3

REPORT INFORMATION
  Report Type: Spontaneous
  Country: DE (occurrence: DE)
  Receive Date: 20130708
  Receipt Date: 20130718
  Transmission Date: 20140515
  Serious: Yes (Hospitalization)
  Sender: FDA-Public Use
  Company Number: DE-BRACCO-001415

PATIENT
  Age: 53 Year
  Sex: Male

DRUGS (1)
  1. SOLUTRAST [Suspect]
     Indication: COMPUTERISED TOMOGRAM HEAD
     Dates: start: 20130502, end: 20130502

REACTIONS (6)
  - Dyspnoea [Recovered/Resolved]
  - Cyanosis [Recovered/Resolved]
  - Convulsion [Recovered/Resolved]
  - Asthenia [Recovered/Resolved]
  - Vomiting [Recovered/Resolved]
  - Aspiration [Recovered/Resolved]
